FAERS Safety Report 12193778 (Version 2)
Quarter: 2016Q1

REPORT INFORMATION
  Report Type: Spontaneous
  Country: US (occurrence: US)
  Receive Date: 20160321
  Receipt Date: 20160322
  Transmission Date: 20160526
  Serious: No
  Sender: FDA-Public Use
  Company Number: US-009507513-1603USA008977

PATIENT

DRUGS (3)
  1. TEMODAR [Suspect]
     Active Substance: TEMOZOLOMIDE
     Dosage: 20 MG, UNK
     Route: 048
     Dates: start: 20160302, end: 20160302
  2. TEMODAR [Suspect]
     Active Substance: TEMOZOLOMIDE
     Dosage: 20 MG, UNK
     Route: 048
     Dates: start: 20160303, end: 20160303
  3. TEMODAR [Suspect]
     Active Substance: TEMOZOLOMIDE
     Dosage: 20 MG, UNK
     Route: 048
     Dates: start: 20160304, end: 20160304

REACTIONS (4)
  - No adverse event [Unknown]
  - Expired product administered [Unknown]
  - Expired product administered [Unknown]
  - Expired product administered [Unknown]

NARRATIVE: CASE EVENT DATE: 20160302
